FAERS Safety Report 4461176-3 (Version None)
Quarter: 2004Q3

REPORT INFORMATION
  Report Type: 
  Country: None (occurrence: None)
  Receive Date: 20040923
  Receipt Date: 20040917
  Transmission Date: 20050211
  Serious: Yes (Other)
  Sender: FDA-Public Use
  Company Number: 2004232009US

PATIENT
  Sex: Male

DRUGS (2)
  1. CELEBREX [Suspect]
  2. PLAVIX [Suspect]

REACTIONS (3)
  - GASTRIC POLYPS [None]
  - GASTRIC ULCER [None]
  - POST PROCEDURAL HAEMORRHAGE [None]
